FAERS Safety Report 7418366-7 (Version None)
Quarter: 2011Q2

REPORT INFORMATION
  Report Type: 
  Country: None (occurrence: None)
  Receive Date: 20110415
  Receipt Date: 20110405
  Transmission Date: 20111010
  Serious: Yes (Life-Threatening, Hospitalization)
  Sender: FDA-Public Use
  Company Number: B0710681A

PATIENT
  Sex: Female
  Weight: 57 kg

DRUGS (12)
  1. OROCAL D3 [Concomitant]
     Route: 065
  2. BISOPROLOL FUMARATE [Concomitant]
     Dosage: 10MG PER DAY
     Route: 065
  3. SPECIAFOLDINE [Concomitant]
     Route: 065
  4. RISPERDAL [Concomitant]
     Dosage: 2MG TWICE PER DAY
     Route: 065
  5. PREVISCAN [Suspect]
     Indication: DEEP VEIN THROMBOSIS
     Dosage: 20MG PER DAY
     Route: 048
     Dates: start: 20110303
  6. FOSAMAX [Concomitant]
     Dosage: 1UNIT WEEKLY
     Route: 065
  7. KARDEGIC [Concomitant]
     Dosage: 160MG PER DAY
     Route: 065
  8. RIVOTRIL [Concomitant]
     Dosage: 5DROP AT NIGHT
     Route: 048
  9. TAHOR [Concomitant]
     Route: 065
  10. ARIXTRA [Suspect]
     Indication: DEEP VEIN THROMBOSIS
     Dosage: 7.5MG PER DAY
     Route: 058
     Dates: start: 20110303
  11. MEMANTINE [Concomitant]
     Dosage: 10MG PER DAY
     Route: 065
  12. VIT B1B6 [Concomitant]
     Dosage: 4UNIT PER DAY
     Route: 065

REACTIONS (13)
  - HYPOTHERMIA [None]
  - CONJUNCTIVAL PALLOR [None]
  - HAEMOGLOBIN DECREASED [None]
  - RENAL FAILURE [None]
  - SHOCK HAEMORRHAGIC [None]
  - SUBDURAL HAEMATOMA [None]
  - SOMNOLENCE [None]
  - COMA [None]
  - PALLOR [None]
  - MUSCLE HAEMORRHAGE [None]
  - HYPOTENSION [None]
  - CONTRAINDICATION TO MEDICAL TREATMENT [None]
  - CONTUSION [None]
